FAERS Safety Report 12654923 (Version 1)
Quarter: 2016Q3

REPORT INFORMATION
  Report Type: Spontaneous
  Country: US (occurrence: None)
  Receive Date: 20160815
  Receipt Date: 20160815
  Transmission Date: 20161109
  Serious: No
  Sender: FDA-Public Use
  Company Number: None

PATIENT
  Age: 78 Year
  Sex: Male
  Weight: 97.3 kg

DRUGS (1)
  1. OLODATEROL [Suspect]
     Active Substance: OLODATEROL
     Indication: ASTHMA
     Route: 055
     Dates: start: 20151029, end: 20160516

REACTIONS (4)
  - Arthralgia [None]
  - Hypertension [None]
  - Myalgia [None]
  - Fatigue [None]
